FAERS Safety Report 5556880-X (Version None)
Quarter: 2007Q4

REPORT INFORMATION
  Report Type: 
  Country: None (occurrence: None)
  Receive Date: 20071214
  Receipt Date: 20071206
  Transmission Date: 20080405
  Serious: Yes (Hospitalization, Other)
  Sender: FDA-Public Use
  Company Number: PHFR2007GB03344

PATIENT
  Age: 38 Year
  Sex: Female

DRUGS (5)
  1. CLOZARIL [Suspect]
     Indication: SCHIZOPHRENIA
     Dosage: 150MG DAILY
     Route: 048
     Dates: start: 19690128
  2. HYOSCINE HBR HYT [Concomitant]
     Indication: SALIVARY HYPERSECRETION
     Dosage: 600UG DAILY
     Route: 048
  3. LEVOTHYROXINE SODIUM [Concomitant]
     Dosage: 125UG DAILY
     Route: 048
  4. DEPAKOTE [Concomitant]
     Dosage: 1500MG DAILY
     Route: 048
  5. FLUOXETINE [Concomitant]
     Indication: DEPRESSION
     Dosage: 80MG DAILY
     Route: 048

REACTIONS (3)
  - DYSPNOEA [None]
  - JOINT SWELLING [None]
  - PAIN IN EXTREMITY [None]
